FAERS Safety Report 10101753 (Version 1)
Quarter: 2014Q2

REPORT INFORMATION
  Report Type: Spontaneous
  Country: FR (occurrence: FR)
  Receive Date: 20140424
  Receipt Date: 20140424
  Transmission Date: 20141212
  Serious: Yes (Hospitalization)
  Sender: FDA-Public Use
  Company Number: FR-ROCHE-1385160

PATIENT
  Age: 12 Year
  Sex: Female

DRUGS (9)
  1. ROCEPHINE [Suspect]
     Indication: PRODUCT USED FOR UNKNOWN INDICATION
     Route: 042
     Dates: start: 20131227, end: 20140105
  2. IBUPROFENE [Suspect]
     Indication: JUVENILE IDIOPATHIC ARTHRITIS
     Route: 048
     Dates: start: 20140102, end: 20140109
  3. AERIUS [Suspect]
     Indication: PRODUCT USED FOR UNKNOWN INDICATION
     Route: 048
     Dates: start: 20131229, end: 20140103
  4. AERIUS [Suspect]
     Route: 048
     Dates: start: 20140106, end: 20140109
  5. RULID [Suspect]
     Indication: PRODUCT USED FOR UNKNOWN INDICATION
     Route: 065
     Dates: start: 20131229, end: 20140111
  6. INEXIUM [Concomitant]
     Indication: PROPHYLAXIS AGAINST GASTROINTESTINAL ULCER
     Route: 048
     Dates: end: 20140109
  7. NAPROXENE [Concomitant]
     Dosage: 500MG I THE MORNING AND EVENING
     Route: 065
  8. JOSACINE TABLETS [Concomitant]
  9. ASPEGIC (ASPIRIN) [Concomitant]
     Indication: KAWASAKI^S DISEASE
     Route: 065
     Dates: start: 20131227, end: 20131228

REACTIONS (2)
  - Hepatocellular injury [Recovered/Resolved]
  - Rhabdomyolysis [Recovered/Resolved]
